FAERS Safety Report 9777378 (Version 2)
Quarter: 2014Q2

REPORT INFORMATION
  Report Type: Spontaneous
  Country: PT (occurrence: PT)
  Receive Date: 20131221
  Receipt Date: 20140612
  Transmission Date: 20141212
  Serious: Yes (Death, Other)
  Sender: FDA-Public Use
  Company Number: PHHY2013PT148555

PATIENT
  Age: 78 Year
  Sex: Male

DRUGS (10)
  1. CICLOSPORIN [Suspect]
     Indication: IMMUNOSUPPRESSION
  2. CICLOSPORIN [Suspect]
     Indication: PROPHYLAXIS AGAINST TRANSPLANT REJECTION
  3. EVEROLIMUS [Suspect]
     Indication: IMMUNOSUPPRESSION
  4. EVEROLIMUS [Suspect]
     Indication: PROPHYLAXIS AGAINST TRANSPLANT REJECTION
  5. PREDNISONE [Suspect]
     Indication: IMMUNOSUPPRESSION
  6. PREDNISONE [Suspect]
     Indication: PROPHYLAXIS AGAINST TRANSPLANT REJECTION
  7. MYCOPHENOLATE MOFETIL [Suspect]
     Indication: IMMUNOSUPPRESSION
  8. MYCOPHENOLATE MOFETIL [Suspect]
     Indication: PROPHYLAXIS AGAINST TRANSPLANT REJECTION
  9. DOXORUBICIN [Concomitant]
     Indication: HERPES VIRUS INFECTION
  10. DOXORUBICIN [Concomitant]
     Indication: KAPOSI^S SARCOMA

REACTIONS (8)
  - Cardiovascular disorder [Fatal]
  - Kaposi^s sarcoma [Unknown]
  - Herpes virus infection [Unknown]
  - Skin lesion [Unknown]
  - Pneumonitis [Unknown]
  - Lung infiltration [Unknown]
  - Pleural effusion [Unknown]
  - Primary effusion lymphoma [Unknown]
